FAERS Safety Report 5680464-6 (Version None)
Quarter: 2008Q1

REPORT INFORMATION
  Report Type: 
  Country: None (occurrence: None)
  Receive Date: 20080326
  Receipt Date: 20080317
  Transmission Date: 20080703
  Serious: Yes (Hospitalization, Other)
  Sender: FDA-Public Use
  Company Number: B0510053A

PATIENT
  Age: 86 Year
  Sex: Male

DRUGS (8)
  1. AMOXICILLIN [Suspect]
     Indication: DRUG USE FOR UNKNOWN INDICATION
     Route: 065
     Dates: start: 20071101, end: 20071101
  2. ATENOLOL [Concomitant]
     Dosage: 50MG PER DAY
     Route: 065
  3. BENDROFLUAZIDE [Concomitant]
     Dosage: 2.5MG PER DAY
     Route: 065
  4. URSODIOL [Concomitant]
  5. CHLORPHENAMINE [Concomitant]
  6. AQUEOUS CREAM + MENTHOL [Concomitant]
  7. LACTULOSE [Concomitant]
  8. PREDNISOLONE [Concomitant]

REACTIONS (9)
  - ALANINE AMINOTRANSFERASE INCREASED [None]
  - BLOOD ALBUMIN INCREASED [None]
  - BLOOD ALKALINE PHOSPHATASE INCREASED [None]
  - BLOOD CHOLESTEROL INCREASED [None]
  - C-REACTIVE PROTEIN INCREASED [None]
  - HAEMOGLOBIN DECREASED [None]
  - INTERNATIONAL NORMALISED RATIO INCREASED [None]
  - JAUNDICE [None]
  - PROTEIN TOTAL DECREASED [None]
